FAERS Safety Report 21667974 (Version 1)
Quarter: 2022Q4

REPORT INFORMATION
  Report Type: Spontaneous
  Country: US (occurrence: US)
  Receive Date: 20221201
  Receipt Date: 20221201
  Transmission Date: 20230112
  Serious: No
  Sender: FDA-Public Use
  Company Number: US-SAMSUNG BIOEPIS-SB-2021-27115

PATIENT
  Age: 37 Year
  Sex: Female

DRUGS (1)
  1. RENFLEXIS [Suspect]
     Active Substance: INFLIXIMAB-ABDA
     Indication: Crohn^s disease
     Dosage: UNKNOWN
     Route: 042
     Dates: start: 202108

REACTIONS (2)
  - Abdominal pain upper [Not Recovered/Not Resolved]
  - Anxiety [Not Recovered/Not Resolved]

NARRATIVE: CASE EVENT DATE: 20210801
